FAERS Safety Report 23928364 (Version 1)
Quarter: 2024Q2

REPORT INFORMATION
  Report Type: Spontaneous
  Country: US (occurrence: US)
  Receive Date: 20240531
  Receipt Date: 20240531
  Transmission Date: 20240716
  Serious: No
  Sender: FDA-Public Use
  Company Number: US-RADIUS HEALTH INC.-2023US005454

PATIENT
  Sex: Female

DRUGS (1)
  1. TYMLOS [Suspect]
     Active Substance: ABALOPARATIDE
     Indication: Senile osteoporosis
     Dosage: 0.5 MILLILITER, QD
     Route: 058
     Dates: start: 202310

REACTIONS (3)
  - Dry mouth [Unknown]
  - Palpitations [Unknown]
  - Intentional product misuse [Unknown]
